FAERS Safety Report 5341592-8 (Version None)
Quarter: 2007Q2

REPORT INFORMATION
  Report Type: 
  Country: None (occurrence: None)
  Receive Date: 20070601
  Receipt Date: 20070522
  Transmission Date: 20071010
  Serious: Yes (Congenital Anomaly)
  Sender: FDA-Public Use
  Company Number: US-JNJFOC-20070505848

PATIENT
  Sex: Male

DRUGS (2)
  1. TOPAMAX [Suspect]
     Indication: DRUG EXPOSURE DURING PREGNANCY
  2. DEPAKOTE [Concomitant]
     Indication: DRUG EXPOSURE DURING PREGNANCY

REACTIONS (4)
  - CONGENITAL ANOMALY [None]
  - CONGENITAL EMPHYSEMA [None]
  - CONVULSION [None]
  - HYPOSPADIAS [None]
